FAERS Safety Report 8077973-1 (Version None)
Quarter: 2012Q1

REPORT INFORMATION
  Report Type: 
  Country: None (occurrence: None)
  Receive Date: 20120127
  Receipt Date: 20110106
  Transmission Date: 20120608
  Serious: No
  Sender: FDA-Public Use
  Company Number: US-ABBOTT-11P-163-0695605-00

PATIENT
  Sex: Female

DRUGS (3)
  1. HUMIRA [Suspect]
     Indication: PSORIASIS
     Route: 058
     Dates: start: 20101204
  2. PROVIGIL [Concomitant]
     Indication: NARCOLEPSY
  3. AMARYL [Concomitant]
     Indication: DIABETES MELLITUS

REACTIONS (4)
  - CHOKING SENSATION [None]
  - COUGH [None]
  - CHEST DISCOMFORT [None]
  - UPPER RESPIRATORY TRACT CONGESTION [None]
